FAERS Safety Report 8223347-X (Version None)
Quarter: 2012Q1

REPORT INFORMATION
  Report Type: 
  Country: None (occurrence: None)
  Receive Date: 20120313
  Receipt Date: 20120229
  Transmission Date: 20120608
  Serious: Yes (Other)
  Sender: FDA-Public Use
  Company Number: DSA_55329_2012

PATIENT

DRUGS (2)
  1. WELLBUTRIN [Suspect]
     Indication: DEPRESSION
     Dosage: DF
  2. CONCERTA [Concomitant]

REACTIONS (2)
  - DISTURBANCE IN ATTENTION [None]
  - DYSGRAPHIA [None]
